FAERS Safety Report 10620945 (Version 1)
Quarter: 2014Q4

REPORT INFORMATION
  Report Type: Report from Study
  Country: DE (occurrence: DE)
  Receive Date: 20141202
  Receipt Date: 20141202
  Transmission Date: 20150529
  Serious: Yes (Hospitalization)
  Sender: FDA-Public Use
  Company Number: DE-ROCHE-1498301

PATIENT
  Sex: Male

DRUGS (8)
  1. VINCRISTINE [Suspect]
     Active Substance: VINCRISTINE
     Indication: MALIGNANT LYMPHOID NEOPLASM
     Route: 065
     Dates: start: 20091201
  2. RITUXIMAB [Suspect]
     Active Substance: RITUXIMAB
     Indication: MALIGNANT LYMPHOID NEOPLASM
     Dosage: DATE OF LAST ADMINISTRATION OF RITUXIMAB 23/NOV/2009.
     Route: 065
     Dates: start: 20091123
  3. PREDNISONE. [Suspect]
     Active Substance: PREDNISONE
     Indication: MALIGNANT LYMPHOID NEOPLASM
     Dosage: DATE OF LAST ADMINISTRATION OF 05/DEC/2009
     Route: 065
     Dates: start: 20091124
  4. DOXORUBICIN [Suspect]
     Active Substance: DOXORUBICIN
     Indication: MALIGNANT LYMPHOID NEOPLASM
     Route: 065
     Dates: start: 20091124
  5. ETOPOSIDE. [Suspect]
     Active Substance: ETOPOSIDE
     Indication: MALIGNANT LYMPHOID NEOPLASM
     Dosage: DATE OF LAST ADMINISTRATION 24/NOV/2009.
     Route: 065
     Dates: start: 20091124
  6. PROCARBAZINE [Suspect]
     Active Substance: PROCARBAZINE
     Indication: MALIGNANT LYMPHOID NEOPLASM
     Dosage: DATE OF LAST ADMINISTRATION  30/NOV/2009.
     Route: 065
     Dates: start: 20091124
  7. CYCLOPHOSPHAMIDE. [Suspect]
     Active Substance: CYCLOPHOSPHAMIDE
     Indication: MALIGNANT LYMPHOID NEOPLASM
     Dosage: DATE OF LAST ADMINISTRATION 24/NOV/2009.
     Route: 065
     Dates: start: 20091124
  8. BLEOMYCIN [Suspect]
     Active Substance: BLEOMYCIN SULFATE
     Indication: MALIGNANT LYMPHOID NEOPLASM
     Route: 065
     Dates: start: 20091201

REACTIONS (1)
  - Liver function test abnormal [Recovered/Resolved]

NARRATIVE: CASE EVENT DATE: 20140212
